FAERS Safety Report 6416804-X (Version None)
Quarter: 2009Q4

REPORT INFORMATION
  Report Type: 
  Country: None (occurrence: None)
  Receive Date: 20091022
  Receipt Date: 20091012
  Transmission Date: 20100525
  Serious: Yes (Death)
  Sender: FDA-Public Use
  Company Number: 2009AC000207

PATIENT
  Age: 72 Year
  Sex: Male

DRUGS (6)
  1. DIGOXIN [Suspect]
     Dosage: 0.25 MG, QD; PO
     Route: 048
     Dates: start: 20060713, end: 20070801
  2. DIAZEPAM [Concomitant]
  3. TRICOR [Concomitant]
  4. PAROXETINE [Concomitant]
  5. LIPITOR [Concomitant]
  6. HYDROCODONE [Concomitant]

REACTIONS (3)
  - ECONOMIC PROBLEM [None]
  - MULTIPLE INJURIES [None]
  - SURGERY [None]
